FAERS Safety Report 23195792 (Version 1)
Quarter: 2023Q4

REPORT INFORMATION
  Report Type: Spontaneous
  Country: CN (occurrence: CN)
  Receive Date: 20231117
  Receipt Date: 20231117
  Transmission Date: 20240110
  Serious: Yes (Hospitalization, Other)
  Sender: FDA-Public Use
  Company Number: None

PATIENT
  Age: 55 Year
  Sex: Female

DRUGS (4)
  1. IFOSFAMIDE [Suspect]
     Active Substance: IFOSFAMIDE
     Indication: Uterine cancer
     Dosage: 2 G, ONE TIME IN ONE DAY
     Route: 041
     Dates: start: 20230524, end: 20230524
  2. MESNA [Suspect]
     Active Substance: MESNA
     Indication: Uterine cancer
     Dosage: 0.4 G, ONE TIME IN ONE DAY
     Route: 042
     Dates: start: 20230524, end: 20230524
  3. BLEOMYCIN HYDROCHLORIDE [Suspect]
     Active Substance: BLEOMYCIN HYDROCHLORIDE
     Indication: Uterine cancer
     Dosage: 15,000 UNITS, ONE TIME IN ONE DAY
     Route: 042
     Dates: start: 20230524, end: 20230524
  4. CISPLATIN [Suspect]
     Active Substance: CISPLATIN
     Indication: Uterine cancer
     Dosage: 40 MG, ONE TIME IN ONE DAY
     Route: 041
     Dates: start: 20230524, end: 20230524

REACTIONS (1)
  - Myelosuppression [Unknown]

NARRATIVE: CASE EVENT DATE: 20230527
